FAERS Safety Report 16128795 (Version 2)
Quarter: 2019Q2

REPORT INFORMATION
  Report Type: Report from Study
  Country: US (occurrence: US)
  Receive Date: 20190328
  Receipt Date: 20190404
  Transmission Date: 20190711
  Serious: No
  Sender: FDA-Public Use
  Company Number: US-SHIRE-US201910063

PATIENT
  Age: 58 Year
  Sex: Male

DRUGS (2)
  1. GATTEX [Suspect]
     Active Substance: TEDUGLUTIDE\WATER
     Dosage: 0.551 MILLILITER, 1X/DAY:QD
     Route: 058
     Dates: start: 20181108
  2. GATTEX [Suspect]
     Active Substance: TEDUGLUTIDE\WATER
     Indication: SHORT-BOWEL SYNDROME
     Dosage: 0.5510 (UNIT UNKNOWN), 1X/DAY:QD
     Route: 058
     Dates: start: 20170818

REACTIONS (3)
  - Unevaluable event [Unknown]
  - Abdominal distension [Recovered/Resolved]
  - Stoma complication [Recovered/Resolved]

NARRATIVE: CASE EVENT DATE: 20190318
